FAERS Safety Report 9053856 (Version 1)
Quarter: 2013Q1

REPORT INFORMATION
  Report Type: Spontaneous
  Country: US (occurrence: US)
  Receive Date: 20130207
  Receipt Date: 20130207
  Transmission Date: 20140127
  Serious: Yes (Other)
  Sender: FDA-Public Use
  Company Number: US-PFIZER INC-2013043783

PATIENT
  Age: 57 Year
  Sex: Male
  Weight: 86.2 kg

DRUGS (1)
  1. PREPARATION H [Suspect]
     Indication: HAEMORRHOIDS
     Dosage: UNK, SINGLE
     Dates: start: 20130131

REACTIONS (1)
  - Anal haemorrhage [Unknown]
